FAERS Safety Report 24200716 (Version 1)
Quarter: 2024Q3

REPORT INFORMATION
  Report Type: Spontaneous
  Country: FR (occurrence: FR)
  Receive Date: 20240812
  Receipt Date: 20240812
  Transmission Date: 20241016
  Serious: Yes (Life-Threatening, Other)
  Sender: MYLAN
  Company Number: None

PATIENT
  Age: 40 Year
  Sex: Male
  Weight: 70 kg

DRUGS (6)
  1. SUFENTANIL [Suspect]
     Active Substance: SUFENTANIL
     Indication: Anaesthesia procedure
     Dosage: NOT PROVIDED
     Route: 042
     Dates: start: 20220410, end: 20220410
  2. PROPOFOL [Suspect]
     Active Substance: PROPOFOL
     Indication: Anaesthesia procedure
     Dosage: NOT PROVIDED
     Route: 042
     Dates: start: 20220410, end: 20220410
  3. DEXAMETHASONE [Suspect]
     Active Substance: DEXAMETHASONE
     Indication: Adrenocortical steroid therapy
     Dosage: NOT PROVIDED
     Route: 042
     Dates: start: 20220410, end: 20220410
  4. CEFAZOLIN [Suspect]
     Active Substance: CEFAZOLIN
     Indication: Antibiotic therapy
     Dosage: NOT PROVIDED
     Route: 042
     Dates: start: 20220410, end: 20220410
  5. ROCURONIUM BROMIDE [Suspect]
     Active Substance: ROCURONIUM BROMIDE
     Indication: Anaesthesia procedure
     Dosage: NOT PROVIDED
     Route: 042
     Dates: start: 20220410, end: 20220410
  6. KETAMINE [Suspect]
     Active Substance: KETAMINE
     Indication: Anaesthesia procedure
     Dosage: NOT PROVIDED
     Route: 042
     Dates: start: 20220410, end: 20220410

REACTIONS (1)
  - Anaphylactic reaction [Recovered/Resolved]

NARRATIVE: CASE EVENT DATE: 20220410
